FAERS Safety Report 5085493-1 (Version None)
Quarter: 2006Q3

REPORT INFORMATION
  Report Type: 
  Country: None (occurrence: None)
  Receive Date: 20060822
  Receipt Date: 20060808
  Transmission Date: 20061208
  Serious: Yes (Hospitalization, Other)
  Sender: FDA-Public Use
  Company Number: PHBS2006DE12013

PATIENT
  Age: 45 Year
  Sex: Female

DRUGS (5)
  1. CYCLOSPORINE [Suspect]
     Indication: LIVER TRANSPLANT
     Dosage: 100 MG, BID
  2. METHYLPREDNISOLONE [Suspect]
     Indication: LIVER TRANSPLANT
  3. LAMIVUDINE [Concomitant]
     Dosage: 100 MG/D
  4. HEPATITIS B IMMUNE GLOBULIN (HUMAN) [Concomitant]
  5. RAPAMYCIN [Concomitant]

REACTIONS (11)
  - ABDOMINAL ABSCESS [None]
  - BILE DUCT STENT INSERTION [None]
  - BILIARY ANASTOMOSIS COMPLICATION [None]
  - COLITIS [None]
  - COLITIS ULCERATIVE [None]
  - DIARRHOEA [None]
  - INFLAMMATORY BOWEL DISEASE [None]
  - LARGE INTESTINAL ULCER HAEMORRHAGE [None]
  - LIVER TRANSPLANT REJECTION [None]
  - OEDEMA MUCOSAL [None]
  - VANISHING BILE DUCT SYNDROME [None]
